FAERS Safety Report 13718429 (Version 1)
Quarter: 2017Q3

REPORT INFORMATION
  Report Type: Report from Study
  Country: JP (occurrence: JP)
  Receive Date: 20170705
  Receipt Date: 20170705
  Transmission Date: 20171127
  Serious: Yes (Death)
  Sender: FDA-Public Use
  Company Number: JP-DSJP-DSJ-2016-127506

PATIENT

DRUGS (20)
  1. EDOXABAN [Suspect]
     Active Substance: EDOXABAN TOSYLATE
     Indication: DEEP VEIN THROMBOSIS
     Dosage: 30 MG, QD
     Route: 048
     Dates: start: 20150617, end: 20160204
  2. TAKEPRON [Concomitant]
     Active Substance: LANSOPRAZOLE
     Dosage: 15MG/DAY
     Route: 048
     Dates: end: 20160203
  3. MAGNESIUM OXIDE. [Concomitant]
     Active Substance: MAGNESIUM OXIDE
     Dosage: 2G/DAY
     Route: 048
     Dates: start: 20160117, end: 20160203
  4. AVAPRO [Concomitant]
     Active Substance: IRBESARTAN
     Dosage: 50MG/DAY
     Route: 048
     Dates: start: 20150530, end: 20160203
  5. UBRETID [Concomitant]
     Active Substance: DISTIGMINE BROMIDE
     Dosage: 5MG/DAY
     Route: 048
     Dates: start: 20160125, end: 20160203
  6. EDOXABAN [Suspect]
     Active Substance: EDOXABAN TOSYLATE
     Indication: PULMONARY EMBOLISM
     Dosage: 60 MG, QD
     Route: 048
     Dates: start: 20150603, end: 20150616
  7. URITOS [Concomitant]
     Active Substance: IMIDAFENACIN
     Dosage: 0.2MG/DAY
     Route: 048
     Dates: end: 20160125
  8. BAKTAR [Concomitant]
     Active Substance: SULFAMETHOXAZOLE\TRIMETHOPRIM
     Dosage: 2G/DAY
     Route: 048
     Dates: start: 20160108, end: 20160202
  9. EBRANTIL                           /00631801/ [Concomitant]
     Active Substance: URAPIDIL
     Dosage: 30MG/DAY
     Route: 048
     Dates: start: 20160125, end: 20160203
  10. TEMODAL [Suspect]
     Active Substance: TEMOZOLOMIDE
     Dosage: 280MG/DAY
     Route: 048
     Dates: start: 20151114, end: 20151118
  11. NASEA [Concomitant]
     Active Substance: RAMOSETRON HYDROCHLORIDE
     Dosage: 0.1 UNK/DAY
     Route: 048
     Dates: start: 20150907, end: 20150911
  12. LASIX [Concomitant]
     Active Substance: FUROSEMIDE
     Dosage: 20MG/DAY
     Route: 048
     Dates: start: 20160201, end: 20160202
  13. TEMODAL [Suspect]
     Active Substance: TEMOZOLOMIDE
     Dosage: 280MG/DAY
     Route: 048
     Dates: start: 20150907, end: 20150911
  14. NASEA [Concomitant]
     Active Substance: RAMOSETRON HYDROCHLORIDE
     Dosage: 0.1 UNK/DAY
     Route: 048
     Dates: start: 20151005, end: 20151009
  15. CRESTOR [Concomitant]
     Active Substance: ROSUVASTATIN CALCIUM
     Dosage: 2.5MG/DAY
     Route: 048
     Dates: end: 20160106
  16. RINDERON                           /00008501/ [Concomitant]
     Active Substance: BETAMETHASONE
     Dosage: 2MG/DAY
     Route: 048
     Dates: start: 20150821, end: 20160203
  17. TEMODAL [Suspect]
     Active Substance: TEMOZOLOMIDE
     Dosage: 280MG/DAY
     Route: 048
     Dates: start: 20151005, end: 20151009
  18. CRAVIT [Concomitant]
     Active Substance: LEVOFLOXACIN
     Dosage: 400MG/DAY
     Route: 048
     Dates: start: 20151119, end: 20151123
  19. CRAVIT [Concomitant]
     Active Substance: LEVOFLOXACIN
     Dosage: 400MG/DAY
     Route: 048
     Dates: start: 20160108, end: 20160112
  20. ZOSYN [Concomitant]
     Active Substance: PIPERACILLIN SODIUM\TAZOBACTAM SODIUM
     Dosage: 18G/DAY
     Route: 042
     Dates: start: 20160204, end: 20160218

REACTIONS (2)
  - Epistaxis [Recovered/Resolved]
  - Brain neoplasm [Fatal]

NARRATIVE: CASE EVENT DATE: 20151118
